FAERS Safety Report 7503949-6 (Version None)
Quarter: 2011Q2

REPORT INFORMATION
  Report Type: 
  Country: None (occurrence: None)
  Receive Date: 20110525
  Receipt Date: 20110523
  Transmission Date: 20111010
  Serious: Yes (Death)
  Sender: FDA-Public Use
  Company Number: FR-GENZYME-FLUD-1001190

PATIENT

DRUGS (3)
  1. FLUDARA [Suspect]
     Dosage: 25 MG/M2, QDX3
     Route: 065
  2. FLUDARA [Suspect]
     Indication: PROPHYLAXIS AGAINST TRANSPLANT REJECTION
     Dosage: 25 MG/M2, QDX3. 1ST CYCLE
     Route: 065
  3. CYCLOPHOSPHAMIDE [Suspect]
     Indication: PROPHYLAXIS AGAINST TRANSPLANT REJECTION
     Dosage: 600 MG/M2, ONCE
     Route: 065

REACTIONS (1)
  - DISEASE PROGRESSION [None]
